FAERS Safety Report 11368401 (Version 1)
Quarter: 2015Q3

REPORT INFORMATION
  Report Type: Spontaneous
  Country: US (occurrence: US)
  Receive Date: 20150811
  Receipt Date: 20150811
  Transmission Date: 20151125
  Serious: No
  Sender: FDA-Public Use
  Company Number: US-ELI_LILLY_AND_COMPANY-US201406006197

PATIENT
  Sex: Male

DRUGS (5)
  1. AXIRON [Suspect]
     Active Substance: TESTOSTERONE
     Dosage: 60 MG, QD
     Route: 061
     Dates: start: 201404
  2. AXIRON [Suspect]
     Active Substance: TESTOSTERONE
     Dosage: 120 MG, QD
     Route: 061
     Dates: end: 201404
  3. TAMSULOSIN [Concomitant]
     Active Substance: TAMSULOSIN
     Indication: PRODUCT USED FOR UNKNOWN INDICATION
     Route: 065
  4. LIVALO [Concomitant]
     Active Substance: PITAVASTATIN CALCIUM
     Indication: PRODUCT USED FOR UNKNOWN INDICATION
     Route: 065
  5. AXIRON [Suspect]
     Active Substance: TESTOSTERONE
     Indication: BLOOD TESTOSTERONE DECREASED
     Dosage: 60 MG, QD
     Route: 061

REACTIONS (4)
  - Incorrect dose administered [Unknown]
  - Loss of libido [Not Recovered/Not Resolved]
  - Drug ineffective [Recovered/Resolved]
  - Drug ineffective [Not Recovered/Not Resolved]
